FAERS Safety Report 8512895-0 (Version None)
Quarter: 2012Q3

REPORT INFORMATION
  Report Type: 
  Country: None (occurrence: None)
  Receive Date: 20120716
  Receipt Date: 20120709
  Transmission Date: 20120928
  Serious: Yes (Death)
  Sender: FDA-Public Use
  Company Number: US-BRISTOL-MYERS SQUIBB COMPANY-16752933

PATIENT

DRUGS (1)
  1. YERVOY [Suspect]
     Dosage: 1 DF:50MG/10ML;00003-2327-11,QTY.2,200MG/40ML;00003-2328-22,QTY.1LOT918609,EXP6/2014

REACTIONS (1)
  - DEATH [None]
